FAERS Safety Report 23738795 (Version 1)
Quarter: 2024Q2

REPORT INFORMATION
  Report Type: Spontaneous
  Country: FR (occurrence: FR)
  Receive Date: 20240413
  Receipt Date: 20240413
  Transmission Date: 20240716
  Serious: Yes (Life-Threatening, Hospitalization, Other)
  Sender: FDA-Public Use
  Company Number: FR-AstrazenecaRSG-2310-D926XC00001(Prod)000001

PATIENT
  Age: 34 Year
  Sex: Female
  Weight: 114 kg

DRUGS (1)
  1. CAPECITABINE [Suspect]
     Active Substance: CAPECITABINE
     Indication: Triple negative breast cancer
     Dosage: 1000 MILLIGRAM/SQ. METER (1000 MG/M2)
     Route: 048
     Dates: start: 20240320, end: 20240322

REACTIONS (1)
  - Cardiac arrest [Recovering/Resolving]

NARRATIVE: CASE EVENT DATE: 20240323
